FAERS Safety Report 25366145 (Version 2)
Quarter: 2025Q3

REPORT INFORMATION
  Report Type: Spontaneous
  Country: US (occurrence: US)
  Receive Date: 20250528
  Receipt Date: 20250905
  Transmission Date: 20251021
  Serious: No
  Sender: SANOFI AVENTIS
  Company Number: US-SA-2025SA151035

PATIENT
  Age: 50 Year
  Sex: Female

DRUGS (2)
  1. DUPIXENT [Suspect]
     Active Substance: DUPILUMAB
     Indication: Neurodermatitis
     Route: 065
     Dates: start: 202505, end: 202505
  2. DUPIXENT [Suspect]
     Active Substance: DUPILUMAB
     Dosage: 300 MG, QOW
     Route: 065
     Dates: start: 202505

REACTIONS (4)
  - Nausea [Unknown]
  - Myalgia [Unknown]
  - Headache [Unknown]
  - Neurodermatitis [Unknown]

NARRATIVE: CASE EVENT DATE: 20250501
